FAERS Safety Report 13689112 (Version 1)
Quarter: 2017Q2

REPORT INFORMATION
  Report Type: Spontaneous
  Country: US (occurrence: US)
  Receive Date: 20170624
  Receipt Date: 20170624
  Transmission Date: 20170830
  Serious: Yes (Hospitalization, Other)
  Sender: FDA-Public Use
  Company Number: None

PATIENT
  Age: 54 Year
  Sex: Male
  Weight: 103 kg

DRUGS (1)
  1. KRYSTEXXA [Suspect]
     Active Substance: PEGLOTICASE
     Indication: GOUT
     Route: 041
     Dates: start: 20170621, end: 20170621

REACTIONS (6)
  - Haematuria [None]
  - Deep vein thrombosis [None]
  - Haemolysis [None]
  - Blood methaemoglobin [None]
  - Pulmonary embolism [None]
  - Anaemia [None]

NARRATIVE: CASE EVENT DATE: 20170624
